FAERS Safety Report 25416051 (Version 1)
Quarter: 2025Q2

REPORT INFORMATION
  Report Type: Spontaneous
  Country: US (occurrence: US)
  Receive Date: 20250610
  Receipt Date: 20250610
  Transmission Date: 20250716
  Serious: Yes (Hospitalization)
  Sender: ROCHE
  Company Number: US-ROCHE-10000303156

PATIENT
  Sex: Female
  Weight: 58.97 kg

DRUGS (2)
  1. OCREVUS [Suspect]
     Active Substance: OCRELIZUMAB
     Indication: Secondary progressive multiple sclerosis
     Dosage: LAST DOSE OF OCRELIZUMAB WAS ON 23-OCT-2024.
     Route: 042
     Dates: start: 20140401
  2. CEFAZOLIN [Concomitant]
     Active Substance: CEFAZOLIN
     Route: 042

REACTIONS (5)
  - Staphylococcal sepsis [Recovering/Resolving]
  - Spinal fracture [Recovered/Resolved]
  - Nephrolithiasis [Recovered/Resolved]
  - Fall [Unknown]
  - Cyst [Recovering/Resolving]
